FAERS Safety Report 6519211-4 (Version None)
Quarter: 2009Q4

REPORT INFORMATION
  Report Type: 
  Country: None (occurrence: None)
  Receive Date: 20091228
  Receipt Date: 20091214
  Transmission Date: 20100525
  Serious: Yes (Disabling)
  Sender: FDA-Public Use
  Company Number: PHHY2008GB12653

PATIENT
  Sex: Female
  Weight: 73 kg

DRUGS (1)
  1. CYCLOSPORINE [Suspect]
     Indication: PSORIASIS
     Dosage: 100 MG, BID
     Route: 048
     Dates: start: 20080409, end: 20080530

REACTIONS (2)
  - ASTHENIA [None]
  - POLLAKIURIA [None]
